FAERS Safety Report 23578483 (Version 2)
Quarter: 2024Q1

REPORT INFORMATION
  Report Type: Report from Study
  Country: ZA (occurrence: ZA)
  Receive Date: 20240229
  Receipt Date: 20240306
  Transmission Date: 20240409
  Serious: Yes (Hospitalization)
  Sender: FDA-Public Use
  Company Number: ZA-AstraZeneca-2024A045577

PATIENT
  Sex: Male
  Weight: 3.7 kg

DRUGS (1)
  1. SYNAGIS [Suspect]
     Active Substance: PALIVIZUMAB
     Indication: Antiviral prophylaxis
     Dosage: EVERY FOUR WEEKS
     Route: 030

REACTIONS (2)
  - Malaise [Unknown]
  - Gastrointestinal disorder [Unknown]
